FAERS Safety Report 13342755 (Version 8)
Quarter: 2022Q2

REPORT INFORMATION
  Report Type: Report from Study
  Country: US (occurrence: None)
  Receive Date: 20170316
  Receipt Date: 20220428
  Transmission Date: 20220720
  Serious: Yes (Hospitalization)
  Sender: FDA-Public Use
  Company Number: US-EISAI MEDICAL RESEARCH-EC-2017-023795

PATIENT
  Age: 59 Year
  Sex: Female

DRUGS (14)
  1. LENVIMA [Suspect]
     Active Substance: LENVATINIB
     Indication: Thyroid cancer
     Route: 048
     Dates: start: 20161230, end: 20170106
  2. LENVIMA [Suspect]
     Active Substance: LENVATINIB
     Route: 048
     Dates: start: 20170111, end: 201703
  3. LENVIMA [Suspect]
     Active Substance: LENVATINIB
     Route: 048
     Dates: start: 201703, end: 20170727
  4. LENVIMA [Suspect]
     Active Substance: LENVATINIB
     Route: 048
     Dates: start: 20170728, end: 201708
  5. LENVIMA [Suspect]
     Active Substance: LENVATINIB
     Route: 048
     Dates: start: 201708, end: 20181004
  6. LENVIMA [Suspect]
     Active Substance: LENVATINIB
     Route: 048
     Dates: start: 20181005, end: 20191031
  7. LENVIMA [Suspect]
     Active Substance: LENVATINIB
     Route: 048
     Dates: start: 201911
  8. REGLAN [Concomitant]
     Active Substance: METOCLOPRAMIDE HYDROCHLORIDE
  9. SYNTHROID [Concomitant]
     Active Substance: LEVOTHYROXINE SODIUM
  10. ULORIC [Concomitant]
     Active Substance: FEBUXOSTAT
  11. XYLOCAINE [Concomitant]
     Active Substance: LIDOCAINE HYDROCHLORIDE
  12. ONDANSETRON [Concomitant]
     Active Substance: ONDANSETRON
  13. LOSARTAN [Concomitant]
     Active Substance: LOSARTAN
  14. CARVEDILOL [Concomitant]
     Active Substance: CARVEDILOL

REACTIONS (20)
  - Dehydration [Not Recovered/Not Resolved]
  - Vomiting [Recovered/Resolved]
  - Asthenia [Recovering/Resolving]
  - Blood magnesium decreased [Recovered/Resolved]
  - Blood calcium decreased [Recovered/Resolved]
  - Blood potassium decreased [Recovered/Resolved]
  - Hypertension [Recovering/Resolving]
  - Nausea [Recovering/Resolving]
  - Stomatitis [Recovered/Resolved]
  - Fatigue [Recovered/Resolved]
  - Dysphagia [Recovered/Resolved]
  - Decreased appetite [Recovering/Resolving]
  - Saliva altered [Recovered/Resolved]
  - Headache [Not Recovered/Not Resolved]
  - Creatinine renal clearance decreased [Recovering/Resolving]
  - Tooth disorder [Not Recovered/Not Resolved]
  - Oral pain [Recovering/Resolving]
  - Skin fissures [Recovering/Resolving]
  - Skin irritation [Recovering/Resolving]
  - Tenderness [Recovering/Resolving]

NARRATIVE: CASE EVENT DATE: 20161201
